FAERS Safety Report 17129452 (Version 2)
Quarter: 2020Q1

REPORT INFORMATION
  Report Type: Spontaneous
  Country: GB (occurrence: GB)
  Receive Date: 20191209
  Receipt Date: 20200110
  Transmission Date: 20200409
  Serious: Yes (Hospitalization, Disabling, Other)
  Sender: FDA-Public Use
  Company Number: GB-CELGENEUS-GBR-20191111020

PATIENT
  Age: 69 Year
  Sex: Male

DRUGS (2)
  1. MMX [Concomitant]
     Indication: PSORIASIS
     Route: 065
     Dates: start: 201209
  2. OTEZLA [Suspect]
     Active Substance: APREMILAST
     Indication: PSORIASIS
     Route: 048
     Dates: start: 201605

REACTIONS (1)
  - Cholangiocarcinoma [Recovering/Resolving]

NARRATIVE: CASE EVENT DATE: 201909
